FAERS Safety Report 5302878-6 (Version None)
Quarter: 2007Q2

REPORT INFORMATION
  Report Type: 
  Country: None (occurrence: None)
  Receive Date: 20070419
  Receipt Date: 20070419
  Transmission Date: 20071010
  Serious: Yes (Life-Threatening, Hospitalization)
  Sender: FDA-Public Use
  Company Number: None

PATIENT
  Age: 53 Year
  Sex: Male
  Weight: 77.1 kg

DRUGS (2)
  1. IBUPROFEN [Suspect]
     Dosage: 600MG TID PO
     Route: 048
     Dates: start: 20051103, end: 20070221
  2. SERTRALINE [Suspect]
     Dosage: 200MG QD PO
     Route: 048
     Dates: start: 20010518, end: 20070417

REACTIONS (4)
  - ANAEMIA [None]
  - DYSPNOEA EXERTIONAL [None]
  - FATIGUE [None]
  - GASTRITIS [None]
